FAERS Safety Report 5269566-6 (Version None)
Quarter: 2007Q1

REPORT INFORMATION
  Report Type: 
  Country: None (occurrence: None)
  Receive Date: 20061213
  Receipt Date: 20031022
  Transmission Date: 20070707
  Serious: Yes (Other)
  Sender: FDA-Public Use
  Company Number: 2003UW13705

PATIENT
  Age: 71 Year
  Sex: Female
  Weight: 59.8748 kg

DRUGS (2)
  1. IRESSA [Suspect]
     Indication: NON-SMALL CELL LUNG CANCER
     Dosage: 250 MG QD PO
     Route: 048
     Dates: start: 20030701, end: 20030701
  2. TYLENOL [Concomitant]

REACTIONS (20)
  - ABDOMINAL PAIN UPPER [None]
  - AMNESIA [None]
  - ASTHENIA [None]
  - BACK PAIN [None]
  - COUGH [None]
  - DIARRHOEA [None]
  - DRY SKIN [None]
  - DYSPEPSIA [None]
  - FATIGUE [None]
  - FLATULENCE [None]
  - GINGIVAL DISORDER [None]
  - HEADACHE [None]
  - INCONTINENCE [None]
  - INCREASED UPPER AIRWAY SECRETION [None]
  - MUSCULOSKELETAL STIFFNESS [None]
  - PAIN [None]
  - POOR PERIPHERAL CIRCULATION [None]
  - SKIN BURNING SENSATION [None]
  - SKIN DISCOLOURATION [None]
  - VISUAL ACUITY REDUCED [None]
